FAERS Safety Report 7138637-1 (Version None)
Quarter: 2010Q4

REPORT INFORMATION
  Report Type: 
  Country: None (occurrence: None)
  Receive Date: 20101122
  Receipt Date: 20100128
  Transmission Date: 20110411
  Serious: Yes (Other)
  Sender: FDA-Public Use
  Company Number: AVE_01517_2010

PATIENT
  Sex: Male

DRUGS (4)
  1. NICOTINE [Suspect]
     Indication: SMOKING CESSATION THERAPY
     Dosage: (21 MG QD TRANSDERMAL)
     Route: 062
     Dates: start: 20100114
  2. LORAZEPAM [Suspect]
     Indication: ANXIETY
     Dosage: (1 MG QD ORAL)
     Route: 048
     Dates: start: 20100110
  3. LORAZEPAM [Suspect]
     Indication: SLEEP DISORDER
     Dosage: (1 MG QD ORAL)
     Route: 048
     Dates: start: 20100110
  4. LITHIUM 450 MG [Suspect]
     Indication: AFFECTIVE DISORDER
     Dosage: (450 MG ORAL)
     Route: 048
     Dates: start: 19800101

REACTIONS (2)
  - BLOOD PRESSURE INCREASED [None]
  - CEREBROVASCULAR ACCIDENT [None]
